FAERS Safety Report 25548897 (Version 1)
Quarter: 2025Q3

REPORT INFORMATION
  Report Type: Spontaneous
  Country: CN (occurrence: CN)
  Receive Date: 20250714
  Receipt Date: 20250714
  Transmission Date: 20251020
  Serious: Yes (Hospitalization, Other)
  Sender: BRISTOL-MYERS SQUIBB COMPANY
  Company Number: CN-BRISTOL-MYERS SQUIBB COMPANY-2025-097133

PATIENT
  Age: 63 Year
  Sex: Male
  Weight: 75.0 kg

DRUGS (4)
  1. REBLOZYL [Suspect]
     Active Substance: LUSPATERCEPT-AAMT
     Indication: Myelodysplastic syndrome
     Route: 058
     Dates: start: 20250427
  2. AZACITIDINE [Concomitant]
     Active Substance: AZACITIDINE
     Indication: Myelodysplastic syndrome
     Dates: start: 20230526
  3. STANOZOLOL [Concomitant]
     Active Substance: STANOZOLOL
     Indication: Myelodysplastic syndrome
     Dates: start: 20230526
  4. TACROLIMUS [Concomitant]
     Active Substance: TACROLIMUS
     Indication: Myelodysplastic syndrome
     Dates: start: 20230526

REACTIONS (2)
  - Pericardial effusion [Recovering/Resolving]
  - Off label use [Unknown]

NARRATIVE: CASE EVENT DATE: 20250616
